FAERS Safety Report 16563750 (Version 3)
Quarter: 2020Q1

REPORT INFORMATION
  Report Type: Spontaneous
  Country: US (occurrence: US)
  Receive Date: 20190712
  Receipt Date: 20200128
  Transmission Date: 20200409
  Serious: Yes (Other)
  Sender: FDA-Public Use
  Company Number: US-ROCHE-2353013

PATIENT
  Sex: Male

DRUGS (1)
  1. ESBRIET [Suspect]
     Active Substance: PIRFENIDONE
     Indication: IDIOPATHIC PULMONARY FIBROSIS
     Dosage: TAKE 1 TABLET 3 TIMES DAILY X 1 WEEK, THEN 2 TABLET 3 TIMES DAILY X 1 WEEK, THEN 3 TABLET 3 TIMES DA
     Route: 048
     Dates: start: 20190529

REACTIONS (4)
  - Mitral valve incompetence [Not Recovered/Not Resolved]
  - Fatigue [Recovering/Resolving]
  - Aortic valve incompetence [Not Recovered/Not Resolved]
  - Dyspnoea [Recovering/Resolving]
